FAERS Safety Report 24060474 (Version 6)
Quarter: 2025Q3

REPORT INFORMATION
  Report Type: Spontaneous
  Country: BR (occurrence: BR)
  Receive Date: 20240708
  Receipt Date: 20250717
  Transmission Date: 20251021
  Serious: No
  Sender: SANDOZ
  Company Number: BR-002147023-NVSC2024BR009232

PATIENT
  Age: 60 Year
  Sex: Female

DRUGS (10)
  1. ANASTROZOLE [Suspect]
     Active Substance: ANASTROZOLE
     Indication: Metastases to bone
     Dosage: 1 DOSAGE FORM, QD
     Route: 048
  2. ANASTROZOLE [Suspect]
     Active Substance: ANASTROZOLE
     Indication: Breast cancer
  3. KISQALI [Suspect]
     Active Substance: RIBOCICLIB SUCCINATE
     Route: 065
  4. KISQALI [Suspect]
     Active Substance: RIBOCICLIB SUCCINATE
     Indication: Breast cancer
     Dosage: 3 DOSAGE FORM, QD
     Route: 048
     Dates: start: 2023
  5. KISQALI [Suspect]
     Active Substance: RIBOCICLIB SUCCINATE
     Indication: Metastases to bone
     Route: 065
     Dates: start: 20240919
  6. ZOLEDRONIC ACID [Suspect]
     Active Substance: ZOLEDRONIC ACID
     Indication: Product used for unknown indication
     Route: 065
  7. An ya [Concomitant]
     Indication: Metastases to bone
     Route: 065
     Dates: start: 202307
  8. CLONAZEPAM [Concomitant]
     Active Substance: CLONAZEPAM
     Indication: Somnolence
     Dosage: 2MG, 1X A DAY (AT NIGHT) (STARTED 1 YEAR AGO)
     Route: 048
  9. ZOLEDRONIC ACID [Concomitant]
     Active Substance: ZOLEDRONIC ACID
     Indication: Breast cancer
     Route: 042
  10. ZOLEDRONIC ACID [Concomitant]
     Active Substance: ZOLEDRONIC ACID
     Indication: Metastases to bone

REACTIONS (34)
  - Hypotension [Recovered/Resolved]
  - Skin mass [Recovered/Resolved]
  - Eye contusion [Recovering/Resolving]
  - Limb injury [Recovering/Resolving]
  - Swelling [Recovering/Resolving]
  - Fall [Recovering/Resolving]
  - Pain in extremity [Recovering/Resolving]
  - Breast mass [Unknown]
  - Weight increased [Unknown]
  - Drug intolerance [Recovered/Resolved]
  - Gastrointestinal disorder [Unknown]
  - Decreased appetite [Recovered/Resolved]
  - Pain [Recovering/Resolving]
  - Fatigue [Recovered/Resolved]
  - Weight decreased [Recovered/Resolved]
  - Insomnia [Recovered/Resolved]
  - Hypotension [Unknown]
  - Discomfort [Unknown]
  - Dizziness [Recovered/Resolved]
  - Weight decreased [Recovered/Resolved]
  - Chest discomfort [Unknown]
  - Asthenia [Recovered/Resolved]
  - Nervousness [Unknown]
  - Fatigue [Recovered/Resolved]
  - Headache [Recovered/Resolved]
  - Nausea [Recovered/Resolved]
  - Arthralgia [Recovering/Resolving]
  - Malaise [Not Recovered/Not Resolved]
  - Malaise [Recovered/Resolved]
  - Emotional disorder [Recovered/Resolved]
  - Decreased appetite [Recovered/Resolved]
  - Nausea [Recovered/Resolved]
  - Headache [Recovered/Resolved]
  - Diarrhoea [Unknown]

NARRATIVE: CASE EVENT DATE: 20240101
